FAERS Safety Report 6531177-X (Version None)
Quarter: 2010Q1

REPORT INFORMATION
  Report Type: 
  Country: None (occurrence: None)
  Receive Date: 20100108
  Receipt Date: 20091230
  Transmission Date: 20100710
  Serious: Yes (Hospitalization)
  Sender: FDA-Public Use
  Company Number: BE-ROCHE-677386

PATIENT
  Age: 59 Year
  Sex: Male

DRUGS (12)
  1. MYCOPHENOLATE MOFETIL [Suspect]
     Route: 065
     Dates: start: 20081108, end: 20090727
  2. MYCOPHENOLATE MOFETIL [Suspect]
     Route: 065
     Dates: start: 20090728, end: 20091208
  3. CYCLOSPORINE [Suspect]
     Route: 065
     Dates: start: 20081109, end: 20090928
  4. CYCLOSPORINE [Suspect]
     Dosage: DOSE DECREASED
     Route: 065
     Dates: start: 20090929
  5. CYCLOSPORINE [Suspect]
     Dosage: DOSE INCREASED
     Route: 065
     Dates: start: 20091211
  6. CALCIUM CARBONATE [Concomitant]
     Dates: start: 20081110
  7. FUROSEMIDE [Concomitant]
     Dates: start: 20081109
  8. BACLOFEN [Concomitant]
     Dates: start: 20060101
  9. ACETYLSALICYLIC ACID [Concomitant]
     Dates: start: 20081109
  10. NITROFURANTOIN [Concomitant]
     Dates: start: 20090203
  11. OMEPRAZOLE [Concomitant]
     Dates: start: 20090324
  12. METHYLPREDNISOLONE [Concomitant]
     Dates: start: 20081108

REACTIONS (3)
  - C-REACTIVE PROTEIN INCREASED [None]
  - DECUBITUS ULCER [None]
  - URINARY TRACT INFECTION [None]
